FAERS Safety Report 5783328-2 (Version None)
Quarter: 2008Q2

REPORT INFORMATION
  Report Type: 
  Country: None (occurrence: None)
  Receive Date: 20080624
  Receipt Date: 20080616
  Transmission Date: 20081010
  Serious: Yes (Other)
  Sender: FDA-Public Use
  Company Number: BR-BAYER-200815149LA

PATIENT
  Age: 31 Year
  Sex: Female
  Weight: 62 kg

DRUGS (1)
  1. AVELOX [Suspect]
     Indication: SINUSITIS
     Dosage: TOTAL DAILY DOSE: 400 MG  UNIT DOSE: 400 MG
     Route: 048
     Dates: start: 20080613, end: 20080613

REACTIONS (6)
  - AGITATION [None]
  - ANXIETY [None]
  - EPISTAXIS [None]
  - HYPERHIDROSIS [None]
  - OCULAR HYPERAEMIA [None]
  - PARAESTHESIA [None]
